FAERS Safety Report 15478528 (Version 1)
Quarter: 2018Q4

REPORT INFORMATION
  Report Type: Spontaneous
  Country: PL (occurrence: PL)
  Receive Date: 20181009
  Receipt Date: 20181009
  Transmission Date: 20190205
  Serious: Yes (Death, Hospitalization)
  Sender: FDA-Public Use
  Company Number: PL-ACELLA PHARMACEUTICALS, LLC-2055837

PATIENT
  Age: 37 Year
  Sex: Female

DRUGS (1)
  1. BROMPHENIRAMINE MALEATE\DEXTROMETHORPHAN HYDROBROMIDE\PSEUDOEPHEDRINE HYDROCHLORIDE [Suspect]
     Active Substance: BROMPHENIRAMINE MALEATE\DEXTROMETHORPHAN HYDROBROMIDE\PSEUDOEPHEDRINE HYDROCHLORIDE

REACTIONS (7)
  - Vomiting [Unknown]
  - Diarrhoea [Unknown]
  - Cardiac arrest [Fatal]
  - Hyponatraemia [Unknown]
  - Hypokalaemia [Unknown]
  - Hepatic steatosis [Unknown]
  - Brain oedema [Unknown]
